FAERS Safety Report 8876127 (Version 2)
Quarter: 2013Q1

REPORT INFORMATION
  Report Type: Spontaneous
  Country: US (occurrence: US)
  Receive Date: 20121030
  Receipt Date: 20130114
  Transmission Date: 20140127
  Serious: Yes (Disabling)
  Sender: FDA-Public Use
  Company Number: US-PERRIGO-12US009259

PATIENT
  Age: 67 Year
  Sex: Male
  Weight: 94.33 kg

DRUGS (2)
  1. TROLAMINE SALICYLATE [Suspect]
     Indication: ARTHRALGIA
     Dosage: DIME SIZE AMOUNT, TID
     Route: 061
     Dates: start: 20121016, end: 20121019
  2. ENALAPRIL [Concomitant]
     Indication: HYPERTENSION
     Dosage: UNK, UNK
     Route: 048

REACTIONS (7)
  - Activities of daily living impaired [Recovered/Resolved]
  - Hypokinesia [Recovered/Resolved]
  - Chills [Recovered/Resolved]
  - Decreased appetite [Recovered/Resolved]
  - Micturition urgency [Recovered/Resolved]
  - Peripheral coldness [Recovered/Resolved]
  - Condition aggravated [Recovered/Resolved]
